FAERS Safety Report 10461116 (Version 1)
Quarter: 2014Q3

REPORT INFORMATION
  Report Type: Spontaneous
  Country: US (occurrence: None)
  Receive Date: 20140917
  Receipt Date: 20140917
  Transmission Date: 20150326
  Serious: No
  Sender: FDA-Public Use
  Company Number: None

PATIENT
  Age: 43 Year
  Sex: Male
  Weight: 75.6 kg

DRUGS (6)
  1. LORZEPAM [Concomitant]
  2. LAMOTRIGINE. [Suspect]
     Active Substance: LAMOTRIGINE
     Indication: BIPOLAR DISORDER
     Dosage: 100  MG 1/2 TAB QD ORAL
     Route: 048
     Dates: start: 20140912, end: 20140915
  3. OLANZAPINE. [Concomitant]
     Active Substance: OLANZAPINE
  4. GABAPENTIN. [Concomitant]
     Active Substance: GABAPENTIN
  5. LIDOCAINE. [Concomitant]
     Active Substance: LIDOCAINE
  6. TRAZODONE [Concomitant]
     Active Substance: TRAZODONE HYDROCHLORIDE

REACTIONS (1)
  - Rash [None]

NARRATIVE: CASE EVENT DATE: 20140914
